FAERS Safety Report 15346241 (Version 1)
Quarter: 2018Q3

REPORT INFORMATION
  Report Type: Spontaneous
  Country: US (occurrence: US)
  Receive Date: 20180828
  Receipt Date: 20180828
  Transmission Date: 20181010
  Serious: Yes (Disabling, Other)
  Sender: FDA-Public Use
  Company Number: None

PATIENT
  Age: 41 Year
  Sex: Female
  Weight: 96.75 kg

DRUGS (3)
  1. VALSARTAN 320MG TABLETS [Suspect]
     Active Substance: VALSARTAN
     Indication: HYPERTENSION
     Dosage: ?          QUANTITY:1 TABLET(S);?
     Route: 048
  2. HCTZ 12.5 MG [Concomitant]
  3. CENTRUM WOMEN MULTIVITAMIN [Concomitant]

REACTIONS (2)
  - Breast cancer stage II [None]
  - Triple negative breast cancer [None]

NARRATIVE: CASE EVENT DATE: 20180823
